FAERS Safety Report 12180875 (Version 1)
Quarter: 2016Q1

REPORT INFORMATION
  Report Type: Other
  Country: None (occurrence: IN)
  Receive Date: 20160315
  Receipt Date: 20160315
  Transmission Date: 20160526
  Serious: Yes (Other)
  Sender: FDA-Public Use
  Company Number: IN-MERCK KGAA-1049089

PATIENT

DRUGS (1)
  1. NOVOTHYROX [Suspect]
     Active Substance: LEVOTHYROXINE SODIUM

REACTIONS (4)
  - Thyroxine increased [None]
  - Diffuse alopecia [None]
  - Overdose [None]
  - Hyperthyroidism [None]
